FAERS Safety Report 9434156 (Version 1)
Quarter: 2013Q3

REPORT INFORMATION
  Report Type: Spontaneous
  Country: US (occurrence: None)
  Receive Date: 20130730
  Receipt Date: 20130730
  Transmission Date: 20140515
  Serious: Yes (Other)
  Sender: FDA-Public Use
  Company Number: None

PATIENT
  Age: 50 Year
  Sex: Female
  Weight: 58.97 kg

DRUGS (1)
  1. BOTOX COSMETIC ALLERGAN [Suspect]
     Dosage: ONE INJECTION TIME 6 PRICKS IM ONE DOSE
     Route: 030
     Dates: start: 20130716, end: 20130716

REACTIONS (4)
  - Feeling abnormal [None]
  - Headache [None]
  - Neck pain [None]
  - Ear pain [None]
